FAERS Safety Report 9781058 (Version 1)
Quarter: 2013Q4

REPORT INFORMATION
  Report Type: Spontaneous
  Country: JP (occurrence: JP)
  Receive Date: 20131224
  Receipt Date: 20131224
  Transmission Date: 20140711
  Serious: Yes (Other)
  Sender: FDA-Public Use
  Company Number: JP-ASTELLAS-2013JP014106

PATIENT
  Age: 76 Year
  Sex: Female

DRUGS (8)
  1. PROGRAF [Suspect]
     Dosage: 1 MG, UNKNOWN/D
     Route: 048
  2. FUNGUARD [Suspect]
     Route: 041
  3. ZOSYN [Concomitant]
     Route: 065
  4. PASIL [Concomitant]
     Route: 065
  5. RECOMODULIN [Concomitant]
     Indication: DISSEMINATED INTRAVASCULAR COAGULATION
     Route: 065
  6. CLARITHROMYCIN [Concomitant]
     Indication: PROPHYLAXIS
     Dosage: 1 DF, UID/QD
     Route: 048
  7. PREDONINE                          /00016201/ [Concomitant]
     Dosage: 7 MG, UNKNOWN/D
     Route: 048
  8. METHOTREXATE [Concomitant]
     Route: 048

REACTIONS (3)
  - White blood cell count decreased [Unknown]
  - Sepsis [Unknown]
  - Disseminated intravascular coagulation [Unknown]
